FAERS Safety Report 25102002 (Version 1)
Quarter: 2025Q1

REPORT INFORMATION
  Report Type: Spontaneous
  Country: CA (occurrence: CA)
  Receive Date: 20250320
  Receipt Date: 20250320
  Transmission Date: 20250409
  Serious: Yes (Death)
  Sender: COVIS PHARMA GMBH
  Company Number: CA-AMAGP-2025COV00318

PATIENT
  Age: 56 Year
  Sex: Male

DRUGS (4)
  1. RILUTEK [Suspect]
     Active Substance: RILUZOLE
     Indication: Amyotrophic lateral sclerosis
  2. RADICAVA [Suspect]
     Active Substance: EDARAVONE
     Indication: Amyotrophic lateral sclerosis
     Route: 048
     Dates: start: 20240806
  3. RADICAVA [Suspect]
     Active Substance: EDARAVONE
     Route: 048
  4. METFORMIN [Concomitant]
     Active Substance: METFORMIN HYDROCHLORIDE
     Indication: Product used for unknown indication

REACTIONS (2)
  - General physical health deterioration [Fatal]
  - Drug ineffective [Fatal]
